FAERS Safety Report 5756891-5 (Version None)
Quarter: 2008Q2

REPORT INFORMATION
  Report Type: 
  Country: None (occurrence: None)
  Receive Date: 20080603
  Receipt Date: 20080602
  Transmission Date: 20081010
  Serious: Yes (Life-Threatening, Hospitalization, Other)
  Sender: FDA-Public Use
  Company Number: GB-BRISTOL-MYERS SQUIBB COMPANY-13540281

PATIENT
  Age: 32 Year
  Sex: Male
  Weight: 82 kg

DRUGS (9)
  1. REYATAZ [Suspect]
     Indication: HIV INFECTION
     Route: 048
     Dates: start: 20050801, end: 20060610
  2. VIDEX [Suspect]
     Indication: HIV INFECTION
     Route: 048
     Dates: start: 20050801, end: 20060610
  3. RITONAVIR [Suspect]
     Indication: HIV INFECTION
     Route: 048
     Dates: start: 20050801, end: 20060609
  4. VIREAD [Suspect]
     Indication: HIV INFECTION
     Dosage: ^REDUCED DOSE^
     Route: 048
     Dates: start: 20050801, end: 20060609
  5. BACTRIM [Concomitant]
     Route: 048
     Dates: start: 20050301
  6. ZIDOVUDINE [Concomitant]
  7. CREATINE MONOHYDRATE [Concomitant]
  8. HERBAL MIXTURE [Concomitant]
  9. SEPTRIN [Concomitant]
     Indication: PNEUMOCYSTIS JIROVECI PNEUMONIA
     Route: 048
     Dates: start: 20050301

REACTIONS (9)
  - ALANINE AMINOTRANSFERASE INCREASED [None]
  - ASPARTATE AMINOTRANSFERASE INCREASED [None]
  - BLOOD ANTIDIURETIC HORMONE INCREASED [None]
  - BLOOD CREATINE PHOSPHOKINASE INCREASED [None]
  - MOBILITY DECREASED [None]
  - MYALGIA [None]
  - MYOGLOBIN BLOOD INCREASED [None]
  - MYOSITIS [None]
  - PAIN IN EXTREMITY [None]
